FAERS Safety Report 7001927-7 (Version None)
Quarter: 2010Q3

REPORT INFORMATION
  Report Type: 
  Country: None (occurrence: None)
  Receive Date: 20100920
  Receipt Date: 20100910
  Transmission Date: 20110219
  Serious: Yes (Death, Hospitalization)
  Sender: FDA-Public Use
  Company Number: A0814626A

PATIENT
  Age: 71 Year
  Sex: Male

DRUGS (2)
  1. AVANDIA [Suspect]
     Route: 048
     Dates: start: 20030101, end: 20071009
  2. AVANDAMET [Suspect]
     Dates: start: 20030101, end: 20030101

REACTIONS (2)
  - DEATH [None]
  - MYOCARDIAL INFARCTION [None]
